FAERS Safety Report 5144470-2 (Version None)
Quarter: 2006Q4

REPORT INFORMATION
  Report Type: 
  Country: None (occurrence: None)
  Receive Date: 20061106
  Receipt Date: 20060906
  Transmission Date: 20070319
  Serious: Yes (Hospitalization)
  Sender: FDA-Public Use
  Company Number: US-BOEHRINGER INGELHEIM PHARMACEUTICALS, INC.-2006-BP-10334RO

PATIENT
  Sex: Male
  Weight: 69.9 kg

DRUGS (7)
  1. METHADONE HCL [Suspect]
     Indication: PAIN
     Dosage: 50 MG BID
     Route: 048
     Dates: start: 20040101
  2. METHADONE HCL [Suspect]
     Route: 048
     Dates: start: 20060829, end: 20060829
  3. ACTOS [Concomitant]
     Indication: DIABETES MELLITUS
     Route: 048
     Dates: start: 20060201
  4. FLOMAX [Concomitant]
     Route: 048
  5. ACIPHEX [Concomitant]
     Route: 048
  6. VITAMIN CAP [Concomitant]
  7. ADVIL [Concomitant]

REACTIONS (3)
  - CHEST PAIN [None]
  - CONVULSION [None]
  - DYSPNOEA [None]
